FAERS Safety Report 9758334 (Version 1)
Quarter: 2013Q4

REPORT INFORMATION
  Report Type: Spontaneous
  Country: US (occurrence: None)
  Receive Date: 20131213
  Receipt Date: 20131213
  Transmission Date: 20140711
  Serious: Yes (Death)
  Sender: FDA-Public Use
  Company Number: None

PATIENT
  Age: 48 Year
  Sex: Female

DRUGS (2)
  1. SUSTIVA [Suspect]
     Indication: HIV INFECTION
     Dosage: 1 TAB QHS ORAL
     Route: 048
     Dates: start: 20111129, end: 20131211
  2. EMTRIVA [Suspect]
     Dosage: 1 TAB Q4DAYS ORAL
     Route: 048
     Dates: start: 20120710, end: 20131211

REACTIONS (3)
  - Death [None]
  - Disease progression [None]
  - Unevaluable event [None]
